FAERS Safety Report 11178741 (Version 1)
Quarter: 2015Q2

REPORT INFORMATION
  Report Type: Spontaneous
  Country: US (occurrence: US)
  Receive Date: 20150610
  Receipt Date: 20150610
  Transmission Date: 20150821
  Serious: No
  Sender: FDA-Public Use
  Company Number: US-TEVA-565852USA

PATIENT
  Age: 72 Year
  Sex: Female
  Weight: 61.29 kg

DRUGS (8)
  1. PROAIR HFA [Suspect]
     Active Substance: ALBUTEROL SULFATE
     Indication: EMPHYSEMA
     Route: 055
     Dates: start: 201412
  2. NEURONTIN [Concomitant]
     Active Substance: GABAPENTIN
     Indication: NEUROPATHY PERIPHERAL
  3. NAPROSYN [Concomitant]
     Active Substance: NAPROXEN
     Indication: INFLAMMATION
  4. RESTORIL [Concomitant]
     Active Substance: TEMAZEPAM
     Indication: MUSCLE SPASMS
  5. ULTRAM [Concomitant]
     Active Substance: TRAMADOL HYDROCHLORIDE
     Indication: PAIN
  6. PREVACID [Concomitant]
     Active Substance: LANSOPRAZOLE
     Indication: GASTROINTESTINAL DISORDER
  7. NAPROSYN [Concomitant]
     Active Substance: NAPROXEN
     Indication: PAIN
  8. SYMBICORT [Concomitant]
     Active Substance: BUDESONIDE\FORMOTEROL FUMARATE DIHYDRATE
     Indication: EMPHYSEMA

REACTIONS (7)
  - Breast swelling [Unknown]
  - Depression [Unknown]
  - Fatigue [Unknown]
  - Diarrhoea [Unknown]
  - Swelling [Unknown]
  - Bladder disorder [Unknown]
  - Drug ineffective [Unknown]

NARRATIVE: CASE EVENT DATE: 201412
